FAERS Safety Report 24753862 (Version 1)
Quarter: 2024Q4

REPORT INFORMATION
  Report Type: Spontaneous
  Country: US (occurrence: None)
  Receive Date: 20241218
  Receipt Date: 20241218
  Transmission Date: 20250114
  Serious: No
  Sender: Public
  Company Number: None

PATIENT
  Age: 61 Year
  Sex: Female

DRUGS (3)
  1. JAKAFI [Suspect]
     Active Substance: RUXOLITINIB
     Dosage: FREQUENCY : TWICE A DAY;?
     Route: 048
     Dates: start: 20190403
  2. ASPIRIN [Concomitant]
     Active Substance: ASPIRIN
  3. HERBALS\TURMERIC [Concomitant]
     Active Substance: HERBALS\TURMERIC

REACTIONS (1)
  - Sinusitis [None]

NARRATIVE: CASE EVENT DATE: 20241218
